FAERS Safety Report 12136228 (Version 1)
Quarter: 2016Q1

REPORT INFORMATION
  Report Type: Report from Study
  Country: US (occurrence: US)
  Receive Date: 20160302
  Receipt Date: 20160302
  Transmission Date: 20160526
  Serious: Yes (Other)
  Sender: FDA-Public Use
  Company Number: US-ROCHE-1718477

PATIENT

DRUGS (7)
  1. 5-FU [Suspect]
     Active Substance: FLUOROURACIL
     Dosage: OVER 46 HOURS
     Route: 042
  2. LEUCOVORIN. [Suspect]
     Active Substance: LEUCOVORIN
     Indication: ADENOCARCINOMA PANCREAS
     Route: 040
  3. OXALIPLATIN. [Suspect]
     Active Substance: OXALIPLATIN
     Indication: ADENOCARCINOMA PANCREAS
     Route: 040
  4. GEMCITABINE [Suspect]
     Active Substance: GEMCITABINE\GEMCITABINE HYDROCHLORIDE
     Indication: ADENOCARCINOMA PANCREAS
     Route: 042
  5. CAPECITABINE. [Suspect]
     Active Substance: CAPECITABINE
     Indication: ADENOCARCINOMA PANCREAS
     Route: 048
  6. 5-FU [Suspect]
     Active Substance: FLUOROURACIL
     Indication: ADENOCARCINOMA PANCREAS
     Route: 040
  7. IRINOTECAN [Suspect]
     Active Substance: IRINOTECAN
     Indication: ADENOCARCINOMA PANCREAS
     Route: 040

REACTIONS (17)
  - Nausea [Unknown]
  - Dehydration [Unknown]
  - Neutropenia [Unknown]
  - Duodenal ulcer [Unknown]
  - Vomiting [Unknown]
  - Liver abscess [Unknown]
  - Cholecystitis [Unknown]
  - Bile duct obstruction [Unknown]
  - Diarrhoea [Unknown]
  - Decreased appetite [Unknown]
  - Gastric ulcer [Unknown]
  - Thrombocytopenia [Unknown]
  - Cholangitis [Unknown]
  - Weight decreased [Unknown]
  - Atrial fibrillation [Unknown]
  - Biliary fistula [Unknown]
  - Abdominal pain [Unknown]
